FAERS Safety Report 12247003 (Version 1)
Quarter: 2016Q2

REPORT INFORMATION
  Report Type: Spontaneous
  Country: US (occurrence: US)
  Receive Date: 20160407
  Receipt Date: 20160407
  Transmission Date: 20160815
  Serious: No
  Sender: FDA-Public Use
  Company Number: US-SHIRE-US201604137

PATIENT
  Sex: Female
  Weight: 58.96 kg

DRUGS (4)
  1. VITAMIN D [Concomitant]
     Active Substance: CHOLECALCIFEROL
     Indication: PRODUCT USED FOR UNKNOWN INDICATION
     Dosage: 1000 IU, 1X/DAY:QD
     Route: 048
  2. MULTIVITAMIN                       /07504101/ [Concomitant]
     Active Substance: VITAMINS
     Indication: PRODUCT USED FOR UNKNOWN INDICATION
     Dosage: 1 DF, 1X/DAY:QD
     Route: 048
  3. LIALDA [Suspect]
     Active Substance: MESALAMINE
     Indication: COLITIS ULCERATIVE
     Dosage: UNK, UNKNOWN
     Route: 048
     Dates: start: 201512
  4. SYNTHROID [Concomitant]
     Active Substance: LEVOTHYROXINE SODIUM
     Indication: AUTOIMMUNE THYROIDITIS
     Dosage: 120 ?G, OTHER (PER DAY)
     Route: 048

REACTIONS (2)
  - Product quality issue [Unknown]
  - Chromaturia [Not Recovered/Not Resolved]
